FAERS Safety Report 8397012-2 (Version None)
Quarter: 2012Q2

REPORT INFORMATION
  Report Type: 
  Country: None (occurrence: None)
  Receive Date: 20120530
  Receipt Date: 20120521
  Transmission Date: 20120825
  Serious: Yes (Hospitalization)
  Sender: FDA-Public Use
  Company Number: FR-BAXTER-2012BAX002302

PATIENT
  Sex: Female

DRUGS (10)
  1. FLUDARABINE PHOSPHATE [Suspect]
     Route: 037
     Dates: start: 20110219, end: 20110219
  2. AMLODIPINE BESYLATE [Concomitant]
     Dosage: 1 UNIT DAILY
     Route: 065
  3. FENOFIBRATE [Concomitant]
     Dosage: 1 UNIT DAILY
     Route: 065
  4. FOLIC ACID [Concomitant]
     Route: 065
  5. CYCLOPHOSPHAMIDE [Suspect]
     Route: 037
     Dates: start: 20110215, end: 20110216
  6. FLUDARABINE PHOSPHATE [Suspect]
     Route: 037
     Dates: start: 20110215, end: 20110216
  7. CYCLOPHOSPHAMIDE [Suspect]
     Route: 037
     Dates: start: 20110219, end: 20110219
  8. LAMALINE                           /00764901/ [Concomitant]
     Route: 065
  9. RITUXIMAB [Suspect]
     Route: 037
     Dates: start: 20110214, end: 20110214
  10. ATACAND [Concomitant]
     Dosage: 1 UNIT DAILY
     Route: 065

REACTIONS (2)
  - BONE MARROW FAILURE [None]
  - SEPSIS [None]
